FAERS Safety Report 20434447 (Version 1)
Quarter: 2022Q1

REPORT INFORMATION
  Report Type: Spontaneous
  Country: GB (occurrence: GB)
  Receive Date: 20220206
  Receipt Date: 20220206
  Transmission Date: 20220423
  Serious: Yes (Death, Congenital Anomaly)
  Sender: FDA-Public Use
  Company Number: None

PATIENT

DRUGS (6)
  1. ENTRESTO [Suspect]
     Active Substance: SACUBITRIL\VALSARTAN
     Indication: Foetal exposure during pregnancy
     Dosage: UNK, MATERNAL DOSE: 1 DOSAGE FORM, BID (49/51MG - ONE TWICE DAILY)
     Route: 064
     Dates: start: 20200428
  2. LANSOPRAZOLE [Concomitant]
     Active Substance: LANSOPRAZOLE
     Indication: Foetal exposure during pregnancy
     Dosage: UNK, MATERNAL DOSE: 15 MG
     Route: 064
  3. ATORVASTATIN [Concomitant]
     Active Substance: ATORVASTATIN
     Indication: Foetal exposure during pregnancy
     Dosage: UNK, MATERNAL DOSE: 20 MG
     Route: 064
  4. BISOPROLOL [Concomitant]
     Active Substance: BISOPROLOL
     Indication: Foetal exposure during pregnancy
     Dosage: UNK, MATERNAL DOSE: 5 MG
     Route: 064
  5. FUROSEMIDE [Concomitant]
     Active Substance: FUROSEMIDE
     Indication: Foetal exposure during pregnancy
     Dosage: UNK, MATERNAL DOSE: 40 MG
     Route: 064
  6. EPLERENONE [Concomitant]
     Active Substance: EPLERENONE
     Indication: Foetal exposure during pregnancy
     Dosage: UNK, MATERNAL DOSE: 25 MG
     Route: 064

REACTIONS (2)
  - Renal aplasia [Fatal]
  - Pulmonary hypoplasia [Fatal]
